FAERS Safety Report 22399447 (Version 3)
Quarter: 2024Q1

REPORT INFORMATION
  Report Type: Spontaneous
  Country: TZ (occurrence: TZ)
  Receive Date: 20230602
  Receipt Date: 20240320
  Transmission Date: 20240410
  Serious: Yes (Congenital Anomaly, Other)
  Sender: FDA-Public Use
  Company Number: TZ-CIPLA LTD.-2023TZ02844

PATIENT

DRUGS (3)
  1. LAMIVUDINE [Suspect]
     Active Substance: LAMIVUDINE
     Dosage: UNK
     Route: 064
  2. DOLUTEGRAVIR [Suspect]
     Active Substance: DOLUTEGRAVIR
     Dosage: UNK
     Route: 064
  3. TENOFOVIR [Suspect]
     Active Substance: TENOFOVIR
     Dosage: UNK
     Route: 064

REACTIONS (4)
  - Congenital teratoma [Unknown]
  - Arnold-Chiari malformation [Unknown]
  - Atrial septal defect [Unknown]
  - Foetal exposure during pregnancy [Unknown]
